FAERS Safety Report 7516501-3 (Version None)
Quarter: 2011Q2

REPORT INFORMATION
  Report Type: 
  Country: None (occurrence: None)
  Receive Date: 20110601
  Receipt Date: 20110523
  Transmission Date: 20111010
  Serious: No
  Sender: FDA-Public Use
  Company Number: A0924826A

PATIENT
  Sex: Male

DRUGS (8)
  1. LASIX [Concomitant]
  2. CHEMOTHERAPY [Concomitant]
     Indication: B-CELL LYMPHOMA
  3. NEULASTA [Concomitant]
  4. KAPIDEX [Concomitant]
  5. NEXIUM [Concomitant]
  6. INSULIN [Concomitant]
  7. PROMACTA [Suspect]
     Indication: AUTOIMMUNE THROMBOCYTOPENIA
     Dosage: 25MG PER DAY
     Dates: start: 20090901, end: 20100401
  8. SONATA [Concomitant]

REACTIONS (3)
  - THROMBOCYTOPENIA [None]
  - NO ADVERSE EVENT [None]
  - CONDITION AGGRAVATED [None]
